FAERS Safety Report 17547082 (Version 4)
Quarter: 2020Q3

REPORT INFORMATION
  Report Type: Report from Study
  Country: NL (occurrence: NL)
  Receive Date: 20200316
  Receipt Date: 20200518
  Transmission Date: 20201104
  Serious: Yes (Hospitalization, Other)
  Sender: FDA-Public Use
  Company Number: NVSC2020NL069815

PATIENT
  Age: 68 Year
  Sex: Male

DRUGS (4)
  1. DEXAMETHASONE. [Concomitant]
     Active Substance: DEXAMETHASONE
     Indication: NAUSEA
     Dosage: UNK
     Route: 065
     Dates: start: 20200213, end: 20200304
  2. GRANISETRON [Concomitant]
     Active Substance: GRANISETRON
     Indication: NAUSEA
     Dosage: UNK
     Route: 065
     Dates: start: 20200205, end: 20200213
  3. PDR001 [Suspect]
     Active Substance: SPARTALIZUMAB
     Indication: METASTATIC MALIGNANT MELANOMA
     Dosage: 400 MG, Q4W
     Route: 042
     Dates: start: 20200130, end: 20200130
  4. RIBOCICLIB. [Suspect]
     Active Substance: RIBOCICLIB
     Indication: METASTATIC MALIGNANT MELANOMA
     Dosage: 600 MG, QD
     Route: 048
     Dates: start: 20200130

REACTIONS (1)
  - Immune-mediated hepatitis [Not Recovered/Not Resolved]

NARRATIVE: CASE EVENT DATE: 20200227
